FAERS Safety Report 6102635-7 (Version None)
Quarter: 2009Q1

REPORT INFORMATION
  Report Type: 
  Country: None (occurrence: None)
  Receive Date: 20090304
  Receipt Date: 20081023
  Transmission Date: 20090719
  Serious: No
  Sender: FDA-Public Use
  Company Number: A0753762A

PATIENT
  Sex: Female

DRUGS (3)
  1. REQUIP [Suspect]
     Indication: DRUG USE FOR UNKNOWN INDICATION
     Route: 048
  2. ATIVAN [Suspect]
     Indication: DRUG USE FOR UNKNOWN INDICATION
     Route: 048
  3. WINE [Suspect]
     Route: 048

REACTIONS (6)
  - DRUG INTERACTION [None]
  - FEELING ABNORMAL [None]
  - HYPERHIDROSIS [None]
  - MALAISE [None]
  - NAUSEA [None]
  - PARAESTHESIA [None]
